FAERS Safety Report 9117815 (Version 1)
Quarter: 2013Q1

REPORT INFORMATION
  Report Type: Spontaneous
  Country: FR (occurrence: FR)
  Receive Date: 20130225
  Receipt Date: 20130225
  Transmission Date: 20140127
  Serious: Yes (Hospitalization)
  Sender: FDA-Public Use
  Company Number: FR-US-EMD SERONO, INC.-7194656

PATIENT
  Sex: Female

DRUGS (4)
  1. OVITRELLE [Suspect]
     Indication: IN VITRO FERTILISATION
     Route: 058
     Dates: start: 20120218, end: 20120218
  2. DECAPEPTYL [Suspect]
     Indication: IN VITRO FERTILISATION
     Route: 030
     Dates: start: 20120206, end: 20120206
  3. PUREGON [Suspect]
     Indication: IN VITRO FERTILISATION
     Route: 058
     Dates: start: 20120207, end: 20120215
  4. PUREGON [Suspect]
     Route: 058
     Dates: start: 20120215, end: 20120217

REACTIONS (2)
  - Ovarian hyperstimulation syndrome [Recovered/Resolved]
  - Pelvic fluid collection [Recovering/Resolving]
